FAERS Safety Report 6669798-6 (Version None)
Quarter: 2010Q2

REPORT INFORMATION
  Report Type: 
  Country: None (occurrence: None)
  Receive Date: 20100402
  Receipt Date: 20100319
  Transmission Date: 20101027
  Serious: Yes (Hospitalization, Other)
  Sender: FDA-Public Use
  Company Number: 009222

PATIENT
  Age: 9 Year
  Sex: Female

DRUGS (4)
  1. BUSULFEX [Suspect]
     Indication: STEM CELL TRANSPLANT
  2. CYCLOSPORINE [Concomitant]
  3. PREDNISONE TAB [Concomitant]
  4. IMMUNOGLOBULIN ANTI-HUMAN-LYMPHOCYTIC (ANTILYMPHOCYTE IMMUNOGLOBLIN (H [Concomitant]

REACTIONS (8)
  - ACUTE GRAFT VERSUS HOST DISEASE IN SKIN [None]
  - BLOOD CULTURE POSITIVE [None]
  - DEVICE RELATED INFECTION [None]
  - ENTEROCOCCAL BACTERAEMIA [None]
  - HAEMOLYTIC ANAEMIA [None]
  - HYPOTENSION [None]
  - SERRATIA BACTERAEMIA [None]
  - STAPHYLOCOCCAL INFECTION [None]
